FAERS Safety Report 8249104-6 (Version None)
Quarter: 2012Q2

REPORT INFORMATION
  Report Type: 
  Country: None (occurrence: None)
  Receive Date: 20120402
  Receipt Date: 20120329
  Transmission Date: 20120825
  Serious: Yes (Other)
  Sender: FDA-Public Use
  Company Number: US-PFIZER INC-2012071374

PATIENT
  Sex: Female

DRUGS (3)
  1. LYRICA [Suspect]
     Indication: SCIATICA
     Dosage: 75 MG, 3X/DAY
     Route: 048
     Dates: start: 20110101
  2. SUBOXONE [Concomitant]
     Dosage: UNK
  3. IBUPROFEN [Concomitant]
     Dosage: UNK

REACTIONS (3)
  - WEIGHT INCREASED [None]
  - DRUG DEPENDENCE [None]
  - SKIN LESION [None]
